FAERS Safety Report 9528625 (Version 1)
Quarter: 2013Q3

REPORT INFORMATION
  Report Type: Spontaneous
  Country: US (occurrence: US)
  Receive Date: 20130917
  Receipt Date: 20130917
  Transmission Date: 20140515
  Serious: No
  Sender: FDA-Public Use
  Company Number: US-BANPHARM-20120011

PATIENT
  Age: 72 Year
  Sex: Female
  Weight: 73 kg

DRUGS (12)
  1. ZYRTEC LIQUID GELS 10 MG [Suspect]
     Indication: MULTIPLE ALLERGIES
     Dosage: 1 DF, QD,
     Route: 048
  2. COZAAR [Concomitant]
     Indication: HYPERTENSION
  3. HCTZ [Concomitant]
     Indication: HYPERTENSION
  4. POTASSIUM [Concomitant]
  5. EVISTA [Concomitant]
     Indication: OSTEOPOROSIS PROPHYLAXIS
  6. LOVASTATIN [Concomitant]
     Indication: BLOOD CHOLESTEROL INCREASED
  7. TOPROL [Concomitant]
     Indication: HYPERTENSION
  8. PLAVIX [Concomitant]
     Indication: ANTIPLATELET THERAPY
  9. NEXIUM [Concomitant]
  10. GLIPIZIDE [Concomitant]
     Indication: DIABETES MELLITUS
  11. METFORMIN [Concomitant]
     Indication: DIABETES MELLITUS
  12. L-THYROXINE [Concomitant]
     Indication: THYROID DISORDER

REACTIONS (1)
  - Blood glucose increased [Not Recovered/Not Resolved]
